FAERS Safety Report 12093636 (Version 1)
Quarter: 2016Q1

REPORT INFORMATION
  Report Type: Spontaneous
  Country: US (occurrence: None)
  Receive Date: 20160218
  Receipt Date: 20160218
  Transmission Date: 20160526
  Serious: Yes (Life-Threatening, Hospitalization)
  Sender: FDA-Public Use
  Company Number: None

PATIENT
  Age: 62 Year
  Weight: 63.6 kg

DRUGS (2)
  1. RIVAROXABAN [Suspect]
     Active Substance: RIVAROXABAN
     Indication: ATRIAL FIBRILLATION
     Route: 048
     Dates: start: 20151111, end: 20160212
  2. DABIGATRAN [Suspect]
     Active Substance: DABIGATRAN
     Indication: ATRIAL FIBRILLATION
     Route: 048
     Dates: start: 20151219, end: 20160111

REACTIONS (5)
  - Gastrooesophageal reflux disease [None]
  - Haemoglobin decreased [None]
  - Gastric haemorrhage [None]
  - Fatigue [None]
  - Haematocrit decreased [None]

NARRATIVE: CASE EVENT DATE: 20160212
